FAERS Safety Report 9829727 (Version 1)
Quarter: 2014Q1

REPORT INFORMATION
  Report Type: Spontaneous
  Country: FR (occurrence: FR)
  Receive Date: 20140120
  Receipt Date: 20140120
  Transmission Date: 20141002
  Serious: Yes (Hospitalization)
  Sender: FDA-Public Use
  Company Number: FR-BRISTOL-MYERS SQUIBB COMPANY-20026852

PATIENT
  Age: 31 Year
  Sex: Male

DRUGS (3)
  1. BARACLUDE [Suspect]
     Indication: CHRONIC HEPATITIS B
     Dates: start: 2006
  2. ZEFFIX [Suspect]
     Route: 048
     Dates: start: 2006, end: 200806
  3. HEPSERA [Suspect]
     Route: 048
     Dates: start: 2006, end: 200806

REACTIONS (1)
  - Vasculitis cerebral [Not Recovered/Not Resolved]
